FAERS Safety Report 23325174 (Version 3)
Quarter: 2023Q4

REPORT INFORMATION
  Report Type: Spontaneous
  Country: US (occurrence: US)
  Receive Date: 20231221
  Receipt Date: 20231222
  Transmission Date: 20240109
  Serious: No
  Sender: FDA-Public Use
  Company Number: US-OPELLA-2023OHG018642

PATIENT

DRUGS (1)
  1. ACT ANTICAVITY FLUORIDE CINNAMON [Suspect]
     Active Substance: SODIUM FLUORIDE

REACTIONS (1)
  - Tooth discolouration [Unknown]
